FAERS Safety Report 7831512-6 (Version None)
Quarter: 2011Q4

REPORT INFORMATION
  Report Type: 
  Country: None (occurrence: None)
  Receive Date: 20111021
  Receipt Date: 20111013
  Transmission Date: 20120403
  Serious: Yes (Other)
  Sender: FDA-Public Use
  Company Number: US-VERTEX PHARMACEUTICALS INC.-AE-2011-000349

PATIENT
  Sex: Male
  Weight: 82.174 kg

DRUGS (13)
  1. MULTI-VITAMIN [Concomitant]
     Indication: SUPPLEMENTATION THERAPY
     Route: 048
  2. EMETROL [Concomitant]
     Dates: start: 20110401
  3. RIBAVIRIN [Suspect]
     Indication: HEPATITIS C
     Route: 048
     Dates: start: 20110324
  4. VX-950 [Suspect]
     Indication: HEPATITIS C
     Dates: start: 20110324, end: 20110616
  5. RIBAVIRIN [Suspect]
  6. BUPROPION HCL [Concomitant]
     Indication: ERECTILE DYSFUNCTION
     Route: 048
  7. TYLENOL-500 [Concomitant]
     Dates: start: 20110401
  8. PEGASYS [Suspect]
     Indication: HEPATITIS C
     Route: 058
     Dates: start: 20110324
  9. ZYRTEC [Concomitant]
     Indication: SEASONAL ALLERGY
     Route: 048
  10. VALACYCLOVIR [Concomitant]
     Indication: HERPES SIMPLEX
     Route: 048
  11. FISH OIL [Concomitant]
     Indication: SUPPLEMENTATION THERAPY
     Route: 048
  12. ALEVE [Concomitant]
     Dates: start: 20110401
  13. UNISOM [Concomitant]
     Indication: INSOMNIA
     Route: 048

REACTIONS (1)
  - DRUG RASH WITH EOSINOPHILIA AND SYSTEMIC SYMPTOMS [None]
